FAERS Safety Report 5499720-X (Version None)
Quarter: 2007Q4

REPORT INFORMATION
  Report Type: 
  Country: None (occurrence: None)
  Receive Date: 20071026
  Receipt Date: 20071017
  Transmission Date: 20080405
  Serious: Yes (Other)
  Sender: FDA-Public Use
  Company Number: JP-ROCHE-486675

PATIENT
  Age: 16 Year
  Sex: Female
  Weight: 51 kg

DRUGS (5)
  1. TAMIFLU [Suspect]
     Route: 048
     Dates: start: 20070214, end: 20070214
  2. TAMIFLU [Suspect]
     Route: 048
     Dates: start: 20070215, end: 20070216
  3. TAMIFLU [Suspect]
     Route: 048
     Dates: start: 20070217, end: 20070217
  4. HUSCODE [Concomitant]
     Route: 048
     Dates: start: 20070214, end: 20070224
  5. SELBEX [Concomitant]
     Route: 048
     Dates: start: 20070214, end: 20070224

REACTIONS (1)
  - SUICIDAL IDEATION [None]
